FAERS Safety Report 8499556-1 (Version None)
Quarter: 2012Q3

REPORT INFORMATION
  Report Type: 
  Country: None (occurrence: None)
  Receive Date: 20120710
  Receipt Date: 20120629
  Transmission Date: 20120928
  Serious: Yes (Hospitalization, Other)
  Sender: FDA-Public Use
  Company Number: US-BRISTOL-MYERS SQUIBB COMPANY-16562365

PATIENT
  Age: 71 Year
  Sex: Male
  Weight: 94 kg

DRUGS (18)
  1. COSYNTROPIN [Concomitant]
     Dosage: SD ONE
     Route: 042
  2. NAPHAZOLINE HCL [Concomitant]
     Dosage: 1DF=1-2 DROPS EACH EYE
  3. PREDNISONE TAB [Concomitant]
     Dosage: SD ONE
     Route: 048
  4. POLYMYCIN B SULFATE [Concomitant]
     Dosage: 1 DROP IN EACH EYE Q3 HRS,OPH
  5. LEUKINE [Suspect]
     Indication: MALIGNANT MELANOMA
     Dosage: LAST DOSE ON 07NOV2011,COURSES:16
     Route: 058
     Dates: start: 20110802
  6. SODIUM CHLORIDE [Concomitant]
     Route: 042
  7. DIPHENHYDRAMINE HCL [Concomitant]
     Dosage: SD ONE
     Route: 048
  8. DOCUSATE SODIUM [Concomitant]
     Route: 048
  9. GENTAMICIN SULFATE [Concomitant]
     Dosage: 1-2 DROPS EACH EYE Q4HRS OPH
  10. LORAZEPAM [Concomitant]
     Dosage: QHS
     Route: 048
  11. ONDANSETRON HCL [Concomitant]
     Dosage: Q8HRS.
     Route: 042
  12. FAMOTIDINE [Concomitant]
     Route: 048
  13. ZOLPIDEM TARTRATE [Concomitant]
     Route: 048
  14. IPILIMUMAB [Suspect]
     Indication: MALIGNANT MELANOMA
     Dosage: LAST DOSE:20MAR12,12JUN12.COU:16,10MG/KG OVER 90 MIN ON DAY1 ,1Q12 WEEKS(MAINTENANCE),917MG
     Route: 042
     Dates: start: 20110802
  15. ENOXAPARIN SODIUM [Concomitant]
     Route: 058
  16. PHENIRAMINE MALEATE [Concomitant]
     Dosage: 1-2 DROPS EACH EYE OPH
  17. OMEPRAZOLE [Concomitant]
     Route: 048
  18. OXYCODONE HCL [Concomitant]
     Dosage: 5-10 MG,Q6 HRS,PRN
     Route: 048

REACTIONS (6)
  - CHOLECYSTITIS [None]
  - DYSPNOEA [None]
  - SYNCOPE [None]
  - ABDOMINAL PAIN [None]
  - FATIGUE [None]
  - ADRENAL INSUFFICIENCY [None]
